FAERS Safety Report 7540425-9 (Version None)
Quarter: 2011Q2

REPORT INFORMATION
  Report Type: 
  Country: None (occurrence: None)
  Receive Date: 20110610
  Receipt Date: 20110601
  Transmission Date: 20111010
  Serious: Yes (Other)
  Sender: FDA-Public Use
  Company Number: B0725182A

PATIENT
  Sex: Female
  Weight: 60.5 kg

DRUGS (2)
  1. ALLI [Suspect]
     Indication: WEIGHT DECREASED
     Dosage: 3CAP PER DAY
     Route: 048
     Dates: start: 20110527, end: 20110601
  2. B12 VITAMIN [Concomitant]
     Indication: ALOPECIA
     Route: 048
     Dates: start: 20110527, end: 20110601

REACTIONS (2)
  - RECTAL DISCHARGE [None]
  - HAEMATOCHEZIA [None]
